FAERS Safety Report 13028460 (Version 2)
Quarter: 2016Q4

REPORT INFORMATION
  Report Type: Spontaneous
  Country: TN (occurrence: TN)
  Receive Date: 20161214
  Receipt Date: 20161219
  Transmission Date: 20170207
  Serious: Yes (Death, Other)
  Sender: FDA-Public Use
  Company Number: TN-MYLANLABS-2016M1055626

PATIENT

DRUGS (6)
  1. EPINEPHRINE. [Suspect]
     Active Substance: EPINEPHRINE
     Indication: ANAPHYLACTIC SHOCK
     Dosage: 0.3 MG WITH FLUID PERFUSION AND OXYGEN
     Route: 042
  2. AUGMENTIN [Suspect]
     Active Substance: AMOXICILLIN\CLAVULANATE POTASSIUM
     Indication: PHARYNGITIS
     Dosage: UNK
     Route: 065
     Dates: start: 20070907
  3. OXYGEN. [Concomitant]
     Active Substance: OXYGEN
     Indication: PRODUCT USED FOR UNKNOWN INDICATION
     Route: 065
  4. SIMVASTATIN. [Concomitant]
     Active Substance: SIMVASTATIN
     Indication: PRODUCT USED FOR UNKNOWN INDICATION
     Dosage: 20 MG, QD
     Route: 065
  5. CAPTOPRIL. [Concomitant]
     Active Substance: CAPTOPRIL
     Indication: PRODUCT USED FOR UNKNOWN INDICATION
     Dosage: 25 MG, QD
     Route: 065
  6. CLOPIDOGREL [Concomitant]
     Active Substance: CLOPIDOGREL BISULFATE
     Indication: PRODUCT USED FOR UNKNOWN INDICATION
     Dosage: 75 MG, QD
     Route: 065

REACTIONS (4)
  - Vascular stent thrombosis [Fatal]
  - Cardiogenic shock [Fatal]
  - Kounis syndrome [Fatal]
  - Acute myocardial infarction [Unknown]
